FAERS Safety Report 19665759 (Version 1)
Quarter: 2021Q3

REPORT INFORMATION
  Report Type: Spontaneous
  Country: US (occurrence: US)
  Receive Date: 20210806
  Receipt Date: 20210806
  Transmission Date: 20211014
  Serious: Yes (Death, Other)
  Sender: FDA-Public Use
  Company Number: US-ACCORD-224045

PATIENT
  Age: 64 Year
  Sex: Female

DRUGS (2)
  1. PARAPLATIN [Suspect]
     Active Substance: CARBOPLATIN
     Indication: BREAST CANCER
     Dates: start: 20140610, end: 20141015
  2. DOCETAXEL ACCORD [Suspect]
     Active Substance: DOCETAXEL
     Indication: BREAST CANCER
     Dates: start: 20140610, end: 20141015

REACTIONS (1)
  - Alopecia [Not Recovered/Not Resolved]

NARRATIVE: CASE EVENT DATE: 20140705
